FAERS Safety Report 18398765 (Version 11)
Quarter: 2022Q3

REPORT INFORMATION
  Report Type: Spontaneous
  Country: US (occurrence: US)
  Receive Date: 20201019
  Receipt Date: 20220817
  Transmission Date: 20221026
  Serious: Yes (Other)
  Sender: FDA-Public Use
  Company Number: US-GLAXOSMITHKLINE-US2020AMR206667

PATIENT

DRUGS (10)
  1. ZEJULA [Suspect]
     Active Substance: NIRAPARIB
     Indication: Ovarian cancer
     Dosage: 100 MG
     Dates: start: 20190206
  2. ZEJULA [Suspect]
     Active Substance: NIRAPARIB
     Dosage: 100 MG
  3. ZEJULA [Suspect]
     Active Substance: NIRAPARIB
     Dosage: 100 MG, QD
  4. ZEJULA [Suspect]
     Active Substance: NIRAPARIB
     Dosage: 100 MG, QD
  5. ZEJULA [Suspect]
     Active Substance: NIRAPARIB
     Dosage: 100 MG, QD
  6. ZEJULA [Suspect]
     Active Substance: NIRAPARIB
     Dosage: 100 MG, QD
  7. ZEJULA [Suspect]
     Active Substance: NIRAPARIB
     Dosage: 100 MG, QD
  8. ZEJULA [Suspect]
     Active Substance: NIRAPARIB
     Dosage: 100 MG
  9. ZEJULA [Suspect]
     Active Substance: NIRAPARIB
     Dosage: 100 MG
  10. ZEJULA [Suspect]
     Active Substance: NIRAPARIB
     Dosage: 100 MG

REACTIONS (25)
  - Loss of consciousness [Unknown]
  - Dehydration [Not Recovered/Not Resolved]
  - Somnolence [Not Recovered/Not Resolved]
  - Rosacea [Unknown]
  - Alopecia [Not Recovered/Not Resolved]
  - Onychoclasis [Unknown]
  - Thyroid mass [Unknown]
  - Fatigue [Unknown]
  - Insomnia [Unknown]
  - Anxiety [Unknown]
  - Dizziness [Unknown]
  - Vision blurred [Unknown]
  - Bruxism [Not Recovered/Not Resolved]
  - Mouth haemorrhage [Not Recovered/Not Resolved]
  - Multiple allergies [Unknown]
  - Blood sodium increased [Unknown]
  - Nausea [Unknown]
  - Vomiting [Unknown]
  - Diarrhoea [Unknown]
  - Depression [Unknown]
  - Dry skin [Unknown]
  - Malaise [Unknown]
  - Facial spasm [Unknown]
  - Tongue biting [Unknown]
  - Product dose omission issue [Unknown]
